FAERS Safety Report 25013495 (Version 1)
Quarter: 2025Q1

REPORT INFORMATION
  Report Type: Spontaneous
  Country: CN (occurrence: CN)
  Receive Date: 20250226
  Receipt Date: 20250226
  Transmission Date: 20250409
  Serious: Yes (Hospitalization, Other)
  Sender: CHEPLAPHARM
  Company Number: CN-CHEPLA-2025002411

PATIENT
  Age: 72 Year
  Sex: Female
  Weight: 38 kg

DRUGS (6)
  1. CAPECITABINE [Suspect]
     Active Substance: CAPECITABINE
     Indication: Rectal cancer
     Dosage: APPROVAL NO. GYZZ H20073024; MORNING?DAILY DOSE: 1.5 GRAM
     Route: 048
     Dates: start: 20250124, end: 20250201
  2. CAPECITABINE [Suspect]
     Active Substance: CAPECITABINE
     Indication: Rectal cancer
     Dosage: APPROVAL NO. GYZZ H20073024; AFTERNOON?DAILY DOSE: 1 GRAM
     Route: 048
     Dates: start: 20250124, end: 20250201
  3. OXALIPLATIN [Suspect]
     Active Substance: OXALIPLATIN
     Indication: Rectal cancer
     Dosage: APPROVAL NO. GYZZ H20213312?DAILY DOSE: 100 MILLIGRAM
     Route: 042
     Dates: start: 20250124, end: 20250124
  4. BEVACIZUMAB [Suspect]
     Active Substance: BEVACIZUMAB
     Indication: Rectal cancer
     Dosage: APPROVAL NO. GYZZ S20190040?DAILY DOSE: 0.2 GRAM
     Route: 042
     Dates: start: 20250124, end: 20250124
  5. SODIUM CHLORIDE [Concomitant]
     Active Substance: SODIUM CHLORIDE
     Indication: Medication dilution
     Dosage: APPROVAL NO. GYZZ H34023607?DAILY DOSE: 100 MILLILITRE
     Route: 042
     Dates: start: 20250124, end: 20250124
  6. SODIUM CHLORIDE [Concomitant]
     Active Substance: SODIUM CHLORIDE
     Indication: Medication dilution
     Dosage: APPROVAL NO. GYZZ H34023608?DAILY DOSE: 250 MILLILITRE
     Route: 042
     Dates: start: 20250124, end: 20250124

REACTIONS (4)
  - Vomiting [Recovered/Resolved]
  - Nausea [Recovered/Resolved]
  - Diarrhoea [Recovering/Resolving]
  - Faeces discoloured [Recovered/Resolved]

NARRATIVE: CASE EVENT DATE: 20250205
